FAERS Safety Report 14260606 (Version 2)
Quarter: 2018Q3

REPORT INFORMATION
  Report Type: Spontaneous
  Country: US (occurrence: US)
  Receive Date: 20171207
  Receipt Date: 20180723
  Transmission Date: 20181010
  Serious: Yes (Death, Hospitalization, Other)
  Sender: FDA-Public Use
  Company Number: US-PFIZER INC-2017526016

PATIENT
  Age: 26 Year
  Sex: Male

DRUGS (4)
  1. VANCOMYCIN HCL [Suspect]
     Active Substance: VANCOMYCIN HYDROCHLORIDE
     Indication: PERICARDIAL EFFUSION
  2. PIPERACILLIN/TAZOBACTAM [Suspect]
     Active Substance: PIPERACILLIN SODIUM\TAZOBACTAM SODIUM
     Indication: PERICARDIAL EFFUSION
  3. PIPERACILLIN/TAZOBACTAM [Suspect]
     Active Substance: PIPERACILLIN SODIUM\TAZOBACTAM SODIUM
     Indication: ENDOCARDITIS BACTERIAL
     Dosage: UNK
  4. VANCOMYCIN HCL [Suspect]
     Active Substance: VANCOMYCIN HYDROCHLORIDE
     Indication: ENDOCARDITIS BACTERIAL
     Dosage: UNK

REACTIONS (20)
  - Endocarditis [Fatal]
  - Skin lesion [None]
  - Basilar artery occlusion [None]
  - Condition aggravated [Fatal]
  - Ventricular hypokinesia [None]
  - Subarachnoid haemorrhage [None]
  - Cardiac valve vegetation [None]
  - Endocarditis [None]
  - Subcutaneous abscess [None]
  - Oedema peripheral [None]
  - Ejection fraction decreased [None]
  - Pericardial effusion [None]
  - Cardiac tamponade [None]
  - Pyrexia [None]
  - Rhonchi [None]
  - Cerebrovascular accident [None]
  - Tachycardia [None]
  - Septic embolus [None]
  - Hypotension [None]
  - Staphylococcus test positive [None]
